FAERS Safety Report 10175860 (Version 1)
Quarter: 2014Q2

REPORT INFORMATION
  Report Type: Spontaneous
  Country: GB (occurrence: GB)
  Receive Date: 20140516
  Receipt Date: 20140516
  Transmission Date: 20141212
  Serious: Yes (Other)
  Sender: FDA-Public Use
  Company Number: GB-TEVA-480065ISR

PATIENT
  Age: 71 Year
  Sex: Male
  Weight: 101.61 kg

DRUGS (5)
  1. PREDNISOLONE [Suspect]
     Dates: start: 20140416
  2. AMLODIPINE [Concomitant]
     Dates: start: 20140116
  3. FEXOFENADINE [Concomitant]
     Dates: start: 20140417
  4. INDAPAMIDE [Concomitant]
     Dates: start: 20140116
  5. LOSARTAN [Concomitant]
     Dates: start: 20140116

REACTIONS (2)
  - Urticaria [Recovering/Resolving]
  - Pruritus [Recovering/Resolving]
